FAERS Safety Report 4751959-4 (Version None)
Quarter: 2005Q3

REPORT INFORMATION
  Report Type: 
  Country: None (occurrence: None)
  Receive Date: 20050824
  Receipt Date: 20050311
  Transmission Date: 20060218
  Serious: Yes (Hospitalization, Disabling)
  Sender: FDA-Public Use
  Company Number: US-MERCK-0503USA02613

PATIENT
  Age: 65 Year
  Sex: Female
  Weight: 100 kg

DRUGS (10)
  1. VIOXX [Suspect]
     Indication: OSTEOARTHRITIS
     Route: 048
     Dates: start: 20000101, end: 20020716
  2. VIOXX [Suspect]
     Route: 048
     Dates: start: 20020717, end: 20040930
  3. ORABET (METFORMIN HYDROCHLORIDE) [Concomitant]
     Route: 065
  4. SYNTHROID [Concomitant]
     Route: 065
  5. EFFEXOR XR [Concomitant]
     Route: 065
  6. TAXUS (TAMOXIFEN CITRATE) [Concomitant]
     Route: 065
  7. HYDRODIURIL [Concomitant]
     Route: 065
  8. ZOVIRAX [Concomitant]
     Route: 061
  9. HYDROCHLOROTHIAZIDE AND LISINOPRIL [Concomitant]
     Route: 065
  10. GLUCOVANCE [Concomitant]
     Route: 065

REACTIONS (35)
  - ACUTE MYOCARDIAL INFARCTION [None]
  - ANGINA PECTORIS [None]
  - ASTHENIA [None]
  - ATHEROSCLEROSIS [None]
  - BACTERIAL INFECTION [None]
  - BREAST CANCER METASTATIC [None]
  - CARDIAC FAILURE ACUTE [None]
  - CARDIAC FAILURE CONGESTIVE [None]
  - CARDIOMEGALY [None]
  - CAROTID BRUIT [None]
  - CHEST WALL PAIN [None]
  - CHRONIC OBSTRUCTIVE PULMONARY DISEASE [None]
  - CONSTIPATION [None]
  - CORONARY ARTERY DISEASE [None]
  - DEPRESSION [None]
  - DIABETES MELLITUS INADEQUATE CONTROL [None]
  - DYSKINESIA [None]
  - ENCEPHALOPATHY [None]
  - GASTROOESOPHAGEAL REFLUX DISEASE [None]
  - GENERALISED ANXIETY DISORDER [None]
  - HYPERTENSION [None]
  - ISCHAEMIC CARDIOMYOPATHY [None]
  - NORMOCHROMIC NORMOCYTIC ANAEMIA [None]
  - OSTEOARTHRITIS [None]
  - PERIPHERAL VASCULAR DISORDER [None]
  - PLEURAL EFFUSION [None]
  - RASH PRURITIC [None]
  - RENAL ARTERY STENOSIS [None]
  - RENAL FAILURE ACUTE [None]
  - RENAL FAILURE CHRONIC [None]
  - RETINOPATHY HAEMORRHAGIC [None]
  - SPINAL OSTEOARTHRITIS [None]
  - TEMPOROMANDIBULAR JOINT SYNDROME [None]
  - THROMBOPHLEBITIS SUPERFICIAL [None]
  - TREMOR [None]
